FAERS Safety Report 11358722 (Version 1)
Quarter: 2015Q3

REPORT INFORMATION
  Report Type: Spontaneous
  Country: US (occurrence: None)
  Receive Date: 20150806
  Receipt Date: 20150806
  Transmission Date: 20151125
  Serious: Yes (Hospitalization)
  Sender: FDA-Public Use
  Company Number: None

PATIENT
  Age: 70 Year
  Sex: Female
  Weight: 95.5 kg

DRUGS (3)
  1. DEXAMETHASONE. [Concomitant]
     Active Substance: DEXAMETHASONE
  2. PEGYLATED LIPOSOMAL DOXORUBICIN [Suspect]
     Active Substance: DOXORUBICIN
     Indication: PLASMA CELL MYELOMA
     Dosage: DAY 8 ONLY
     Dates: start: 201503, end: 20150616
  3. KYPROLIS [Suspect]
     Active Substance: CARFILZOMIB
     Indication: PLASMA CELL MYELOMA
     Dates: start: 201503, end: 20150722

REACTIONS (6)
  - Confusional state [None]
  - Sepsis [None]
  - Encephalopathy [None]
  - Hypertension [None]
  - Cardiac failure congestive [None]
  - Urinary tract infection [None]

NARRATIVE: CASE EVENT DATE: 20150723
